FAERS Safety Report 9869497 (Version 2)
Quarter: 2014Q1

REPORT INFORMATION
  Report Type: Spontaneous
  Country: US (occurrence: US)
  Receive Date: 20140205
  Receipt Date: 20140218
  Transmission Date: 20141002
  Serious: No
  Sender: FDA-Public Use
  Company Number: US-PFIZER INC-2014027356

PATIENT
  Age: 54 Year
  Sex: Female

DRUGS (1)
  1. NEURONTIN [Suspect]
     Dosage: UNK
     Dates: start: 201108, end: 201108

REACTIONS (4)
  - Drug hypersensitivity [Unknown]
  - Anxiety [Unknown]
  - Headache [Unknown]
  - Dizziness [Unknown]
